FAERS Safety Report 5123689-0 (Version None)
Quarter: 2006Q3

REPORT INFORMATION
  Report Type: 
  Country: None (occurrence: None)
  Receive Date: 20060811
  Receipt Date: 20060515
  Transmission Date: 20061208
  Serious: No
  Sender: FDA-Public Use
  Company Number: S06-USA-01837-01

PATIENT
  Age: 70 Year
  Sex: Male

DRUGS (8)
  1. NAMENDA [Suspect]
     Indication: DEMENTIA
     Dosage: 10 MG BID PO
     Route: 048
     Dates: start: 20060503
  2. NAMENDA [Suspect]
     Indication: DEMENTIA
     Dosage: 5 MG QD PO
     Route: 048
     Dates: start: 20060412, end: 20060418
  3. NAMENDA [Suspect]
     Indication: DEMENTIA
     Dosage: 5 MG BID PO
     Route: 048
     Dates: start: 20060419, end: 20060425
  4. NAMENDA [Suspect]
     Indication: DEMENTIA
     Dosage: 15 MG QD PO
     Route: 048
     Dates: start: 20060426, end: 20060502
  5. RISPERDAL [Suspect]
     Indication: DEMENTIA
     Dates: start: 20060412
  6. LUNESTA [Suspect]
     Indication: INSOMNIA
     Dosage: 1 MG QHS PO
     Route: 048
     Dates: start: 20060412
  7. LOVASTATIN [Concomitant]
  8. LISINOPRIL [Concomitant]

REACTIONS (1)
  - JOINT SWELLING [None]
